FAERS Safety Report 16201480 (Version 2)
Quarter: 2019Q4

REPORT INFORMATION
  Report Type: Spontaneous
  Country: US (occurrence: US)
  Receive Date: 20190416
  Receipt Date: 20191014
  Transmission Date: 20200122
  Serious: Yes (Life-Threatening, Hospitalization)
  Sender: FDA-Public Use
  Company Number: US-SUN PHARMACEUTICAL INDUSTRIES LTD-2019R1-205348

PATIENT
  Age: 14 Year
  Sex: Female

DRUGS (1)
  1. VERAPAMIL [Suspect]
     Active Substance: VERAPAMIL HYDROCHLORIDE
     Indication: PRODUCT USED FOR UNKNOWN INDICATION
     Dosage: (15-20 TABLETS)
     Route: 065

REACTIONS (15)
  - Electrocardiogram QRS complex [Unknown]
  - Device related infection [Unknown]
  - Electrocardiogram QT prolonged [Unknown]
  - Endocarditis [Unknown]
  - Arrhythmia [Unknown]
  - Intentional overdose [Unknown]
  - Lactic acidosis [Unknown]
  - Cardiac arrest [Unknown]
  - Pulmonary oedema [Unknown]
  - Acute respiratory distress syndrome [Unknown]
  - Hyperglycaemia [Unknown]
  - Atrioventricular block first degree [Not Recovered/Not Resolved]
  - Toxicity to various agents [Unknown]
  - Atrioventricular block [Recovered/Resolved]
  - Hypotension [Unknown]
